FAERS Safety Report 10108792 (Version 1)
Quarter: 2014Q2

REPORT INFORMATION
  Report Type: Spontaneous
  Country: US (occurrence: US)
  Receive Date: 20140425
  Receipt Date: 20140425
  Transmission Date: 20141212
  Serious: Yes (Other)
  Sender: FDA-Public Use
  Company Number: US-AMGEN-USASP2014029593

PATIENT
  Age: 42 Year
  Sex: Female

DRUGS (1)
  1. ENBREL [Suspect]
     Indication: RHEUMATOID ARTHRITIS
     Dosage: 25 MG, TWO INJECTIONS ON THE SAME DAY
     Route: 065
     Dates: start: 20140213, end: 20140407

REACTIONS (4)
  - Haematemesis [Recovered/Resolved]
  - Feeling abnormal [Not Recovered/Not Resolved]
  - Sensation of foreign body [Recovered/Resolved]
  - Nausea [Not Recovered/Not Resolved]
